FAERS Safety Report 6325660-X (Version None)
Quarter: 2009Q3

REPORT INFORMATION
  Report Type: 
  Country: None (occurrence: None)
  Receive Date: 20090824
  Receipt Date: 20090724
  Transmission Date: 20100115
  Serious: No
  Sender: FDA-Public Use
  Company Number: US-ABBOTT-09P-163-0587395-00

PATIENT
  Sex: Male
  Weight: 97.61 kg

DRUGS (3)
  1. NIASPAN [Suspect]
     Indication: HIGH DENSITY LIPOPROTEIN DECREASED
     Dosage: SAMPLES FROM MD OFFICE; NO LOT NUMBER AVAILABLE.
     Route: 048
     Dates: start: 20090701, end: 20090717
  2. LISINOPRIL [Concomitant]
     Indication: HYPERTENSION
     Dosage: DAILY IN AM
     Route: 048
  3. ASPIRIN [Concomitant]
     Indication: DRUG USE FOR UNKNOWN INDICATION
     Dosage: TAKEN DAILY, 1/2 HR BEFORE NIASPAN
     Route: 048

REACTIONS (2)
  - HEADACHE [None]
  - INCORRECT DRUG ADMINISTRATION DURATION [None]
